FAERS Safety Report 4555041-0 (Version None)
Quarter: 2005Q1

REPORT INFORMATION
  Report Type: 
  Country: None (occurrence: None)
  Receive Date: 20041228
  Receipt Date: 20040802
  Transmission Date: 20050727
  Serious: Yes (Other)
  Sender: FDA-Public Use
  Company Number: PHEH2004US08353

PATIENT
  Sex: Male

DRUGS (2)
  1. AREDIA [Suspect]
     Indication: METASTASES TO BONE
     Dosage: 90 MG, QMO, IV INFUSION
     Route: 042
     Dates: start: 20040728
  2. PERCOCET [Concomitant]

REACTIONS (5)
  - CONVULSION [None]
  - EYE ROLLING [None]
  - GRAND MAL CONVULSION [None]
  - LOSS OF CONSCIOUSNESS [None]
  - NAUSEA [None]
